FAERS Safety Report 8669883 (Version 2)
Quarter: 2012Q4

REPORT INFORMATION
  Report Type: 
  Country: US (occurrence: US)
  Receive Date: 20120718
  Receipt Date: 20120828
  Transmission Date: 20130627
  Serious: Yes (Other)
  Sender: FDA-Public Use
  Company Number: US-BAYER-2012-070684

PATIENT
  Age: 37 Year
  Sex: Female
  Weight: 113.38 kg

DRUGS (13)
  1. YAZ [Suspect]
     Indication: ENDOMETRIOSIS
  2. YAZ [Suspect]
     Indication: MENSTRUAL CYCLE MANAGEMENT
  3. YASMIN [Suspect]
  4. NASONEX [Concomitant]
  5. FEXOFENADINE [Concomitant]
     Dosage: 180 mg, UNK
  6. SINGULAIR [Concomitant]
     Dosage: 10 mg, UNK
  7. PREVACID [Concomitant]
  8. XOPENEX [Concomitant]
  9. ALBUTEROL [Concomitant]
  10. PREDNISONE [Concomitant]
     Dosage: 10 mg, UNK
  11. DIPHENHYDRAMINE [Concomitant]
     Dosage: 25 mg, UNK
  12. ASMANEX [Concomitant]
     Dosage: 220 mcg/inh ( inhalationUNK, UNK
  13. NASOCORT [Concomitant]

REACTIONS (3)
  - Pulmonary embolism [None]
  - Deep vein thrombosis [None]
  - Thrombophlebitis superficial [None]
